FAERS Safety Report 10094352 (Version 1)
Quarter: 2014Q2

REPORT INFORMATION
  Report Type: Spontaneous
  Country: IT (occurrence: IT)
  Receive Date: 20140422
  Receipt Date: 20140422
  Transmission Date: 20141212
  Serious: Yes (Other)
  Sender: FDA-Public Use
  Company Number: IT-MYLANLABS-2014S1008351

PATIENT
  Age: 64 Year
  Sex: Male

DRUGS (6)
  1. CLARITHROMYCIN [Suspect]
     Indication: PNEUMONITIS
     Dosage: 1 G DAILY
     Route: 048
     Dates: start: 20131223, end: 20131231
  2. HALOPERIDOL [Suspect]
     Indication: BIPOLAR DISORDER
     Dosage: 90 GTT DAILY
     Route: 048
     Dates: start: 20131208, end: 20140109
  3. SERPAX [Concomitant]
     Indication: PRODUCT USED FOR UNKNOWN INDICATION
     Route: 048
     Dates: start: 20131223, end: 20140109
  4. CARBOLITHIUM [Concomitant]
     Indication: BIPOLAR DISORDER
     Dosage: 3 DF
     Route: 048
     Dates: start: 20131115, end: 20140109
  5. CIPROFLOXACIN [Concomitant]
     Indication: OTITIS MEDIA
     Route: 048
     Dates: start: 20131223, end: 20131231
  6. RAMIPRIL [Concomitant]
     Indication: HYPERTENSION
     Route: 048
     Dates: start: 20131115, end: 20140109

REACTIONS (2)
  - Extrapyramidal disorder [Recovered/Resolved]
  - Drug interaction [Recovered/Resolved]
